FAERS Safety Report 18127919 (Version 2)
Quarter: 2021Q2

REPORT INFORMATION
  Report Type: Spontaneous
  Country: None (occurrence: US)
  Receive Date: 20200810
  Receipt Date: 20210624
  Transmission Date: 20210717
  Serious: Yes (Other)
  Sender: FDA-Public Use
  Company Number: US-GLAXOSMITHKLINE-US2020154510

PATIENT
  Sex: Male

DRUGS (6)
  1. ZANTAC [Suspect]
     Active Substance: RANITIDINE HYDROCHLORIDE
     Indication: VARICES OESOPHAGEAL
     Dosage: 25 MG/ML, QD
     Route: 065
     Dates: start: 198301, end: 199501
  2. RANITIDINE CAPSULE [Suspect]
     Active Substance: RANITIDINE
     Indication: VARICES OESOPHAGEAL
     Dosage: 75 MG, QD
     Route: 065
     Dates: start: 198301, end: 199501
  3. ZANTAC [Suspect]
     Active Substance: RANITIDINE HYDROCHLORIDE
     Indication: VARICES OESOPHAGEAL
     Dosage: 75 MG, QD
     Route: 065
     Dates: start: 198301, end: 199501
  4. ZANTAC [Suspect]
     Active Substance: RANITIDINE HYDROCHLORIDE
     Indication: VARICES OESOPHAGEAL
     Dosage: 75 MG, QD
     Route: 065
     Dates: start: 198301, end: 199501
  5. ZANTAC [Suspect]
     Active Substance: RANITIDINE HYDROCHLORIDE
  6. ZANTAC [Suspect]
     Active Substance: RANITIDINE HYDROCHLORIDE
     Indication: VARICES OESOPHAGEAL
     Dosage: 75 MG, QD
     Route: 065
     Dates: start: 198301, end: 199501

REACTIONS (1)
  - Thyroid cancer [Unknown]
